FAERS Safety Report 18911167 (Version 4)
Quarter: 2021Q4

REPORT INFORMATION
  Report Type: Report from Study
  Country: DE (occurrence: DE)
  Receive Date: 20210218
  Receipt Date: 20211209
  Transmission Date: 20220303
  Serious: Yes (Other)
  Sender: FDA-Public Use
  Company Number: DE-UCBSA-2021006557

PATIENT
  Sex: Female

DRUGS (10)
  1. CIMZIA [Suspect]
     Active Substance: CERTOLIZUMAB PEGOL
     Indication: Axial spondyloarthritis
     Dosage: 200 MILLIGRAM, EV 2 WEEKS(QOW)
     Dates: start: 20180323, end: 20180622
  2. CIMZIA [Suspect]
     Active Substance: CERTOLIZUMAB PEGOL
     Dosage: 200 MILLIGRAM, EV 2 WEEKS(QOW)
     Dates: start: 20190522, end: 20190822
  3. CIMZIA [Suspect]
     Active Substance: CERTOLIZUMAB PEGOL
     Dosage: 200 MILLIGRAM, EV 2 WEEKS(QOW)
     Dates: start: 20191021, end: 20200410
  4. CIMZIA [Suspect]
     Active Substance: CERTOLIZUMAB PEGOL
     Dosage: 200 MILLIGRAM, EV 2 WEEKS(QOW)
     Dates: start: 20200515, end: 20200715
  5. CIMZIA [Suspect]
     Active Substance: CERTOLIZUMAB PEGOL
     Dosage: 200 MILLIGRAM, EV 2 WEEKS(QOW)
     Dates: start: 20200901, end: 20201002
  6. CIMZIA [Suspect]
     Active Substance: CERTOLIZUMAB PEGOL
     Dosage: 200 MILLIGRAM, EV 2 WEEKS(QOW)
     Dates: start: 20201120
  7. ACEMETACIN [Concomitant]
     Active Substance: ACEMETACIN
     Indication: Product used for unknown indication
     Dosage: 150 MILLIGRAM
     Dates: start: 20170801, end: 20180815
  8. INSULIN HUMAN [Concomitant]
     Active Substance: INSULIN HUMAN
     Indication: Product used for unknown indication
  9. CELECOXIB [Concomitant]
     Active Substance: CELECOXIB
     Indication: Product used for unknown indication
     Dosage: 400 MILLIGRAM, UNK
     Dates: start: 20200320
  10. CELECOXIB [Concomitant]
     Active Substance: CELECOXIB
     Dosage: 200 UNK
     Dates: start: 20200818

REACTIONS (10)
  - Abortion [Unknown]
  - Haemorrhage [Unknown]
  - Multiple pregnancy [Recovered/Resolved]
  - Onychomycosis [Unknown]
  - Skin ulcer [Unknown]
  - Hyperkeratosis [Unknown]
  - Maternal exposure before pregnancy [Unknown]
  - Maternal exposure during pregnancy [Unknown]
  - Obesity [Unknown]
  - Gastrectomy [Unknown]

NARRATIVE: CASE EVENT DATE: 20180704
